FAERS Safety Report 6089589-7 (Version None)
Quarter: 2009Q1

REPORT INFORMATION
  Report Type: 
  Country: None (occurrence: None)
  Receive Date: 20090219
  Receipt Date: 20090219
  Transmission Date: 20090719
  Serious: No
  Sender: FDA-Public Use
  Company Number: None

PATIENT
  Age: 25 Year
  Sex: Male
  Weight: 99.7913 kg

DRUGS (13)
  1. BUPROPION HCL [Suspect]
     Dosage: 450MG SR PO
     Route: 048
     Dates: start: 20080825, end: 20080911
  2. ACETAMINOPHEN [Concomitant]
  3. BENZOYL PEROXIDE [Concomitant]
  4. CALCIUM CARBONATE [Concomitant]
  5. CELECOXIB [Concomitant]
  6. CLONAZEPAM [Concomitant]
  7. DULOXETINE [Concomitant]
  8. GEMFIBROZIL [Concomitant]
  9. MULTI-VITAMIN [Concomitant]
  10. OMEPRAZOLE [Concomitant]
  11. PREGABALIN [Concomitant]
  12. TRAZODONE HCL [Concomitant]
  13. BUPROPION HCL [Concomitant]

REACTIONS (3)
  - ANXIETY [None]
  - INCORRECT DOSE ADMINISTERED [None]
  - OBSESSIVE THOUGHTS [None]
